FAERS Safety Report 6412993-1 (Version None)
Quarter: 2009Q4

REPORT INFORMATION
  Report Type: 
  Country: None (occurrence: None)
  Receive Date: 20091023
  Receipt Date: 20091015
  Transmission Date: 20100525
  Serious: Yes (Hospitalization)
  Sender: FDA-Public Use
  Company Number: PHHO2009IT12325

PATIENT
  Sex: Male

DRUGS (2)
  1. RAD 666 RAD+TAB [Suspect]
     Indication: LIVER TRANSPLANT
     Dosage: UNK
     Route: 048
     Dates: start: 20081030
  2. TACROLIMUS COMP-TAC+ [Suspect]
     Indication: LIVER TRANSPLANT
     Dosage: UNK
     Dates: end: 20090506

REACTIONS (3)
  - ABDOMINAL HERNIA [None]
  - ABDOMINAL HERNIA REPAIR [None]
  - PYREXIA [None]
